FAERS Safety Report 7683086-0 (Version None)
Quarter: 2011Q3

REPORT INFORMATION
  Report Type: 
  Country: None (occurrence: None)
  Receive Date: 20110815
  Receipt Date: 20110802
  Transmission Date: 20111222
  Serious: Yes (Other)
  Sender: FDA-Public Use
  Company Number: IN-ELI_LILLY_AND_COMPANY-IN201108001256

PATIENT
  Age: 30 Year
  Sex: Female

DRUGS (3)
  1. OLANZAPINE [Suspect]
     Dosage: 15 MG, QD
  2. OLANZAPINE [Suspect]
     Indication: SCHIZOPHRENIA
     Dosage: 5 MG, UNK
  3. LORAZEPAM [Concomitant]
     Dosage: 5 UNK, UNK

REACTIONS (1)
  - MEIGE'S SYNDROME [None]
